FAERS Safety Report 8437214-X (Version None)
Quarter: 2012Q2

REPORT INFORMATION
  Report Type: 
  Country: None (occurrence: None)
  Receive Date: 20120614
  Receipt Date: 20120413
  Transmission Date: 20120825
  Serious: Yes (Other)
  Sender: FDA-Public Use
  Company Number: US-AMGEN-USASP2011051167

PATIENT
  Age: 66 Year
  Sex: Female
  Weight: 49.887 kg

DRUGS (6)
  1. PROLIA [Suspect]
     Indication: OSTEOPOROSIS POSTMENOPAUSAL
     Dosage: 60 MG, Q6MO
     Route: 058
     Dates: start: 20110928, end: 20110928
  2. NEXIUM [Concomitant]
     Indication: GASTROOESOPHAGEAL REFLUX DISEASE
     Dosage: 40 MG, QD
     Route: 048
  3. CRESTOR [Concomitant]
     Indication: BLOOD CHOLESTEROL
     Dosage: 10 MG, QD
     Route: 048
  4. OSCAL D                            /00944201/ [Concomitant]
     Indication: BLOOD CALCIUM
     Dosage: UNK UNK, BID
     Route: 048
  5. VITAMIN D [Concomitant]
     Dosage: UNK UNK, QD
     Route: 048
  6. NORCO [Concomitant]
     Indication: PAIN
     Dosage: UNK UNK, Q6H
     Route: 048

REACTIONS (8)
  - OROPHARYNGEAL PAIN [None]
  - MYALGIA [None]
  - DYSKINESIA [None]
  - WEIGHT BEARING DIFFICULTY [None]
  - MUSCULOSKELETAL PAIN [None]
  - PYREXIA [None]
  - MOBILITY DECREASED [None]
  - JOINT LOCK [None]
